FAERS Safety Report 8001329-0 (Version None)
Quarter: 2011Q4

REPORT INFORMATION
  Report Type: 
  Country: None (occurrence: None)
  Receive Date: 20111222
  Receipt Date: 20111213
  Transmission Date: 20120403
  Serious: Yes (Death, Hospitalization)
  Sender: FDA-Public Use
  Company Number: JP-AMGEN-JPNCT2011044521

PATIENT
  Age: 74 Year
  Sex: Female
  Weight: 45 kg

DRUGS (16)
  1. MINOCYCLINE HCL [Concomitant]
     Indication: INFECTION
     Dosage: 100 MG, UNK
     Route: 048
     Dates: start: 20110427, end: 20110513
  2. HIRUDOID [Concomitant]
     Indication: PROPHYLAXIS
     Route: 062
     Dates: start: 20110427
  3. SODIUM BICARBONATE [Concomitant]
     Indication: PROPHYLAXIS
     Route: 049
     Dates: start: 20110106
  4. PANITUMUMAB [Suspect]
     Indication: COLORECTAL CANCER
     Dosage: UNK, Q2WK
     Route: 041
     Dates: start: 20110428, end: 20110428
  5. IRINOTECAN HCL [Suspect]
     Indication: COLORECTAL CANCER
     Dosage: UNK
     Route: 041
     Dates: start: 20110428
  6. PRAVASTATIN SODIUM [Concomitant]
     Indication: DYSLIPIDAEMIA
     Dosage: 10 MG, UNK
     Route: 048
  7. ALENDRONATE SODIUM [Concomitant]
     Indication: OSTEOPOROSIS
     Dosage: 35 MG, QWK
     Route: 048
  8. ONEALFA [Concomitant]
     Route: 048
  9. FLUMARIN [Concomitant]
     Indication: INFECTION
     Route: 042
     Dates: start: 20110514
  10. TS 1 [Concomitant]
     Indication: COLORECTAL CANCER
     Dosage: UNK
     Route: 048
     Dates: start: 20110428
  11. FAMOTIDINE [Concomitant]
     Indication: GASTROOESOPHAGEAL REFLUX DISEASE
     Dosage: 20 MG, UNK
     Route: 042
     Dates: start: 20110514, end: 20110515
  12. LOCOID [Concomitant]
     Indication: PROPHYLAXIS
     Route: 062
  13. ACETAMINOPHEN [Concomitant]
     Route: 048
     Dates: start: 20110513
  14. MAXIPIME [Concomitant]
     Indication: INFECTION
     Route: 042
     Dates: start: 20110514
  15. PANITUMUMAB [Suspect]
     Dosage: UNK, Q2WK
     Route: 041
     Dates: start: 20110616, end: 20110630
  16. OLMESARTAN MEDOXOMIL [Concomitant]
     Indication: HYPERTENSION
     Dosage: 20 MG, UNK
     Route: 048

REACTIONS (7)
  - HEPATIC FAILURE [None]
  - STOMATITIS [None]
  - ILEUS [None]
  - FEBRILE NEUTROPENIA [None]
  - DIARRHOEA [None]
  - ANAEMIA [None]
  - HYPOALBUMINAEMIA [None]
